FAERS Safety Report 21609423 (Version 1)
Quarter: 2022Q4

REPORT INFORMATION
  Report Type: Spontaneous
  Country: CA (occurrence: CA)
  Receive Date: 20221117
  Receipt Date: 20221117
  Transmission Date: 20230112
  Serious: Yes (Life-Threatening, Hospitalization, Other)
  Sender: FDA-Public Use
  Company Number: CA-PFIZER INC-202201306461

PATIENT
  Age: 9 Year
  Sex: Male

DRUGS (11)
  1. CYTARABINE [Suspect]
     Active Substance: CYTARABINE
     Indication: Acute myeloid leukaemia
     Dosage: 1900 MG, 2 EVERY 1 DAYS
     Route: 042
  2. ETOPOSIDE [Suspect]
     Active Substance: ETOPOSIDE
     Indication: Acute myeloid leukaemia
     Dosage: 280 MG, 1 EVERY 1 DAYS
     Route: 042
  3. CETIRIZINE [Concomitant]
     Active Substance: CETIRIZINE HYDROCHLORIDE
  4. EMEND [Concomitant]
     Active Substance: APREPITANT
  5. MONTELUKAST [Concomitant]
     Active Substance: MONTELUKAST SODIUM
  6. ONDANSETRON [Concomitant]
     Active Substance: ONDANSETRON
  7. PANTOPRAZOLE [Concomitant]
     Active Substance: PANTOPRAZOLE
  8. POSACONAZOLE [Concomitant]
     Active Substance: POSACONAZOLE
  9. PREDNISOLONE [Concomitant]
     Active Substance: PREDNISOLONE
  10. SULFAMETHOXAZOLE\TRIMETHOPRIM [Concomitant]
     Active Substance: SULFAMETHOXAZOLE\TRIMETHOPRIM
  11. ZENHALE [Concomitant]
     Active Substance: FORMOTEROL FUMARATE\MOMETASONE FUROATE

REACTIONS (1)
  - Febrile neutropenia [Recovering/Resolving]
